FAERS Safety Report 8845394 (Version 2)
Quarter: 2013Q3

REPORT INFORMATION
  Report Type: Report from Study
  Country: US (occurrence: US)
  Receive Date: 20121017
  Receipt Date: 20130707
  Transmission Date: 20140515
  Serious: Yes (Hospitalization)
  Sender: FDA-Public Use
  Company Number: US-VERTEX PHARMACEUTICAL INC.-2012-022897

PATIENT
  Age: 57 Year
  Sex: Male
  Weight: 95 kg

DRUGS (7)
  1. VX-950 (TELAPREVIR) [Suspect]
     Indication: HEPATITIS C
     Dosage: 1125 MG, UNK
     Route: 048
     Dates: start: 20120913
  2. Z-RIBAVIRIN [Suspect]
     Indication: HEPATITIS C
     Dosage: 800 MG, UNK
     Route: 048
     Dates: start: 20120913, end: 20121016
  3. Z-RIBAVIRIN [Suspect]
     Dosage: 600 MG, UNK
     Route: 048
     Dates: start: 20121016
  4. Z-PEGYLATED INTERFERON-2A [Suspect]
     Indication: HEPATITIS C
     Dosage: 180 ?G, UNK
     Route: 058
     Dates: start: 20120913
  5. ASA [Concomitant]
     Indication: HEADACHE
     Dosage: UNK
     Dates: start: 20121011
  6. SALINE                             /00075401/ [Concomitant]
     Dosage: UNK
     Dates: start: 20121011
  7. TYLENOL                            /00020001/ [Concomitant]
     Indication: HEADACHE
     Dosage: UNK
     Dates: start: 20121011

REACTIONS (1)
  - Syncope [Recovered/Resolved]
